FAERS Safety Report 9681461 (Version 1)
Quarter: 2013Q4

REPORT INFORMATION
  Report Type: Spontaneous
  Country: US (occurrence: US)
  Receive Date: 20131111
  Receipt Date: 20131111
  Transmission Date: 20140711
  Serious: Yes (Other)
  Sender: FDA-Public Use
  Company Number: US-BRISTOL-MYERS SQUIBB COMPANY-19799659

PATIENT
  Age: 80 Year
  Sex: Male
  Weight: 99.77 kg

DRUGS (1)
  1. WARFARIN SODIUM [Suspect]
     Indication: ATRIAL FIBRILLATION
     Dates: start: 1999

REACTIONS (3)
  - Prostatic haemorrhage [Recovered/Resolved]
  - Prostatic disorder [Unknown]
  - Scar [Unknown]
